FAERS Safety Report 25686979 (Version 1)
Quarter: 2025Q3

REPORT INFORMATION
  Report Type: Spontaneous
  Country: EU (occurrence: EU)
  Receive Date: 20250816
  Receipt Date: 20250816
  Transmission Date: 20251020
  Serious: Yes (Other)
  Sender: AUROBINDO
  Company Number: EU-BIOGARAN-B25001292

PATIENT
  Age: 68 Year
  Sex: Female

DRUGS (4)
  1. SIMVASTATIN [Suspect]
     Active Substance: SIMVASTATIN
     Indication: Hypercholesterolaemia
     Dosage: 1 TABLET PER DAY
     Route: 048
  2. BISOPROLOL [Suspect]
     Active Substance: BISOPROLOL
     Indication: Hypertension
     Dosage: 1 TABLET PER DAY IN THE MORNING
     Route: 048
     Dates: start: 202506
  3. AMLODIPINE [Suspect]
     Active Substance: AMLODIPINE BESYLATE
     Indication: Hypertension
     Dosage: 1 PER DAY IN THE MORNING.
     Route: 048
  4. FLECAINIDE [Concomitant]
     Active Substance: FLECAINIDE
     Indication: Product used for unknown indication
     Dosage: 1 TABLET PER DAY IN THE MORNING
     Route: 048

REACTIONS (12)
  - Hypotension [Not Recovered/Not Resolved]
  - Vertigo [Not Recovered/Not Resolved]
  - Tachycardia [Not Recovered/Not Resolved]
  - Fatigue [Not Recovered/Not Resolved]
  - Chest pain [Not Recovered/Not Resolved]
  - Erythema [Not Recovered/Not Resolved]
  - Contusion [Not Recovered/Not Resolved]
  - Peripheral swelling [Recovering/Resolving]
  - Pain [Recovering/Resolving]
  - Arteriosclerosis [Unknown]
  - Cardiomegaly [Unknown]
  - Arterial occlusive disease [Unknown]

NARRATIVE: CASE EVENT DATE: 20250101
